FAERS Safety Report 9375337 (Version 1)
Quarter: 2013Q2

REPORT INFORMATION
  Report Type: Spontaneous
  Country: GB (occurrence: GB)
  Receive Date: 20130628
  Receipt Date: 20130628
  Transmission Date: 20140414
  Serious: Yes (Death)
  Sender: FDA-Public Use
  Company Number: GB-BRISTOL-MYERS SQUIBB COMPANY-19050525

PATIENT
  Age: 60 Year
  Sex: Male
  Weight: 111.12 kg

DRUGS (10)
  1. BYETTA [Suspect]
     Indication: DIABETES MELLITUS
     Dates: start: 2011, end: 201301
  2. ALLOPURINOL [Concomitant]
  3. AMLODIPINE [Concomitant]
  4. BISOPROLOL FUMARATE [Concomitant]
  5. CRESTOR [Concomitant]
  6. EZETIMIBE [Concomitant]
  7. GLICLAZIDE [Concomitant]
  8. METFORMIN HCL TABS [Concomitant]
     Dosage: MODIFIED-RELEASE TABLET
  9. PIOGLITAZONE HCL [Concomitant]
  10. RAMIPRIL [Concomitant]
     Dosage: CANCELLED BY GP WITHIN 3 MONTHS.

REACTIONS (1)
  - Pancreatic carcinoma metastatic [Fatal]
